FAERS Safety Report 20111000 (Version 1)
Quarter: 2021Q4

REPORT INFORMATION
  Report Type: Spontaneous
  Country: HR (occurrence: HR)
  Receive Date: 20211125
  Receipt Date: 20211125
  Transmission Date: 20220303
  Serious: Yes (Other)
  Sender: FDA-Public Use
  Company Number: HR-SUN PHARMACEUTICAL INDUSTRIES LTD-2021R1-318428

PATIENT
  Sex: Female

DRUGS (2)
  1. BUDESONIDE\FORMOTEROL FUMARATE [Suspect]
     Active Substance: BUDESONIDE\FORMOTEROL FUMARATE
     Indication: Asthma
     Dosage: HIGH-DOSE
     Route: 065
  2. LEUKOTRIENE D4 [Suspect]
     Active Substance: LEUKOTRIENE D4
     Indication: Asthma
     Dosage: HIGH-DOSE
     Route: 065

REACTIONS (1)
  - Condition aggravated [Unknown]
